FAERS Safety Report 5317615-9 (Version None)
Quarter: 2007Q2

REPORT INFORMATION
  Report Type: 
  Country: None (occurrence: None)
  Receive Date: 20070507
  Receipt Date: 20070426
  Transmission Date: 20071010
  Serious: Yes (Other)
  Sender: FDA-Public Use
  Company Number: PHRM2007FR01368

PATIENT
  Sex: Female
  Weight: 67 kg

DRUGS (3)
  1. INDAPAMIDE [Concomitant]
  2. ATENOLOL [Concomitant]
  3. LAMISIL [Suspect]
     Indication: NAIL TINEA
     Dosage: 250 MG, QD
     Route: 048

REACTIONS (4)
  - ANOREXIA [None]
  - APHTHOUS STOMATITIS [None]
  - GAMMA-GLUTAMYLTRANSFERASE INCREASED [None]
  - WEIGHT DECREASED [None]
